FAERS Safety Report 9099184 (Version 3)
Quarter: 2013Q2

REPORT INFORMATION
  Report Type: Report from Study
  Country: US (occurrence: US)
  Receive Date: 20130213
  Receipt Date: 20130427
  Transmission Date: 20140414
  Serious: Yes (Hospitalization, Disabling)
  Sender: FDA-Public Use
  Company Number: US-ROCHE-1186561

PATIENT
  Age: 55 Year
  Sex: Male
  Weight: 89.44 kg

DRUGS (28)
  1. AVASTIN [Suspect]
     Indication: BRAIN NEOPLASM MALIGNANT
     Route: 042
     Dates: start: 20110801
  2. AVASTIN [Suspect]
     Indication: GLIOBLASTOMA
     Route: 042
     Dates: start: 201109
  3. DECADRON [Concomitant]
     Indication: GLIOBLASTOMA
     Route: 048
  4. SUPPOSITORY (UNK INGREDIENTS) [Concomitant]
     Indication: CONSTIPATION
     Route: 054
  5. SUPPOSITORY (UNK INGREDIENTS) [Concomitant]
     Indication: HAEMORRHOIDS
  6. HEPARIN SODIUM FLUSH [Concomitant]
     Route: 042
     Dates: start: 20130207
  7. COENZYME Q-10 [Concomitant]
     Route: 048
  8. VITAMIN C [Concomitant]
     Route: 048
  9. CHROMIUM PICOLINATE [Concomitant]
     Route: 048
  10. BUMETANID [Concomitant]
     Route: 048
  11. POTASSIUM CHLORIDE [Concomitant]
     Route: 048
  12. VENTOLIN [Concomitant]
  13. B COMPLEX VITAMINS [Concomitant]
     Route: 048
  14. DEXAMETHASONE [Concomitant]
     Route: 048
  15. LISINOPRIL [Concomitant]
     Dosage: COMPONENT CONDITION: ALTERNATES WITH 2 MG EVERY OTHER DAY
     Route: 048
  16. VITAMIN D3 [Concomitant]
     Route: 048
  17. INSULIN LISPRO [Concomitant]
     Dosage: COMPONENT CONDITION: INSULIN PUMP-BASAL RATE VARIES 3.6 UNITS/HR ON AVERAGE
     Route: 065
  18. OMEPRAZOLE [Concomitant]
     Route: 065
  19. MAGNESIUM OXIDE [Concomitant]
     Route: 065
  20. MAGNESIUM OXIDE [Concomitant]
     Route: 065
  21. MILK THISTLE [Concomitant]
     Route: 065
  22. FISH OIL [Concomitant]
     Route: 048
  23. LYSINE [Concomitant]
     Route: 048
  24. NEPAFENAC [Concomitant]
     Dosage: COMPONENT CONDITION: RIGHT EYE TID, LEFT EYE-BID
     Route: 047
  25. PREDNISOLONE [Concomitant]
     Dosage: COMPONENT CONDITION: RIGHT EYE TID, LEFT EYE-BID
     Route: 047
  26. CHLORHEXIDINE GLUCONATE [Concomitant]
     Dosage: COMPONENT CONDITIO: SWISH AND SPIT
     Route: 065
  27. THYROID [Concomitant]
     Route: 048
  28. MUCINEX [Concomitant]
     Route: 065

REACTIONS (25)
  - Chest pain [Recovered/Resolved]
  - Confusional state [Not Recovered/Not Resolved]
  - Herpes zoster [Recovered/Resolved]
  - Respiratory tract infection [Recovered/Resolved]
  - Concussion [Recovering/Resolving]
  - Haemorrhoidal haemorrhage [Recovered/Resolved]
  - Pain in extremity [Not Recovered/Not Resolved]
  - Nerve injury [Not Recovered/Not Resolved]
  - Pruritus [Recovered/Resolved]
  - Constipation [Not Recovered/Not Resolved]
  - Diarrhoea [Not Recovered/Not Resolved]
  - Cataract [Recovered/Resolved]
  - Fall [Unknown]
  - Back pain [Recovered/Resolved]
  - Rash [Recovered/Resolved]
  - Skin ulcer [Recovering/Resolving]
  - Ear swelling [Not Recovered/Not Resolved]
  - Ear discomfort [Not Recovered/Not Resolved]
  - Blood glucose increased [Not Recovered/Not Resolved]
  - Heart rate increased [Not Recovered/Not Resolved]
  - Herpes zoster [Recovered/Resolved]
  - Hypotension [Recovered/Resolved]
  - Wound infection staphylococcal [Not Recovered/Not Resolved]
  - Decreased appetite [Recovered/Resolved]
  - Abdominal pain [Recovered/Resolved]
